FAERS Safety Report 11418866 (Version 1)
Quarter: 2015Q3

REPORT INFORMATION
  Report Type: Spontaneous
  Country: CA (occurrence: CA)
  Receive Date: 20150826
  Receipt Date: 20150826
  Transmission Date: 20151125
  Serious: Yes (Other)
  Sender: FDA-Public Use
  Company Number: CA-TEVA-588148ACC

PATIENT
  Age: 70 Year
  Sex: Female
  Weight: 93.52 kg

DRUGS (13)
  1. LOSEC [Concomitant]
     Active Substance: OMEPRAZOLE
  2. TYLENOL WITH CODEINE NO. 4 - TAB [Concomitant]
  3. VALSARTAN. [Suspect]
     Active Substance: VALSARTAN
     Dosage: 80 MILLIGRAM DAILY;
     Route: 065
  4. CODEINE CONTIN 100MG CONTROLLED RELEASE TAB [Concomitant]
  5. PREDNISONE. [Concomitant]
     Active Substance: PREDNISONE
  6. RIVOTRIL [Concomitant]
     Active Substance: CLONAZEPAM
  7. VALSARTAN. [Suspect]
     Active Substance: VALSARTAN
     Indication: HYPERTENSION
     Dosage: 160 MILLIGRAM DAILY;
     Route: 065
  8. APO PREDNISONE TAB 5MG [Concomitant]
  9. DIOVAN-HCT 160MG/12.5MG [Concomitant]
  10. ATIVAN [Concomitant]
     Active Substance: LORAZEPAM
  11. K-DUR [Concomitant]
     Active Substance: POTASSIUM CHLORIDE
  12. KEFLEX [Concomitant]
     Active Substance: CEPHALEXIN
  13. TYLENOL WITH CODEINE [Concomitant]
     Active Substance: ACETAMINOPHEN\CODEINE PHOSPHATE

REACTIONS (8)
  - Confusional state [Recovered/Resolved]
  - Product substitution issue [Recovered/Resolved]
  - Depression [Recovered/Resolved]
  - Drug ineffective [Recovered/Resolved]
  - Fatigue [Recovered/Resolved]
  - Insomnia [Recovered/Resolved]
  - Blood pressure fluctuation [Recovered/Resolved]
  - Myalgia [Recovered/Resolved]
